FAERS Safety Report 17224323 (Version 1)
Quarter: 2020Q1

REPORT INFORMATION
  Report Type: Spontaneous
  Country: GB (occurrence: GB)
  Receive Date: 20200102
  Receipt Date: 20200102
  Transmission Date: 20200409
  Serious: Yes (Disabling, Other)
  Sender: FDA-Public Use
  Company Number: GB-PFIZER INC-2003018154

PATIENT
  Age: 21 Year
  Sex: Female

DRUGS (1)
  1. DOXYCYCLINE. [Suspect]
     Active Substance: DOXYCYCLINE
     Indication: MALARIA PROPHYLAXIS
     Dosage: DAILY
     Route: 048

REACTIONS (9)
  - Retinal exudates [Recovered/Resolved]
  - Optic atrophy [Unknown]
  - Intracranial pressure increased [Recovered/Resolved]
  - Vomiting [Unknown]
  - Maternal exposure during pregnancy [Unknown]
  - Vision blurred [Unknown]
  - Headache [Recovered/Resolved]
  - Papilloedema [Recovered/Resolved]
  - Blindness [Unknown]
